FAERS Safety Report 9794607 (Version 1)
Quarter: 2014Q1

REPORT INFORMATION
  Report Type: Spontaneous
  Country: US (occurrence: US)
  Receive Date: 20140102
  Receipt Date: 20140102
  Transmission Date: 20141002
  Serious: Yes (Other)
  Sender: FDA-Public Use
  Company Number: US-GLAXOSMITHKLINE-A1054786A

PATIENT
  Sex: Female

DRUGS (2)
  1. ZOFRAN [Suspect]
     Indication: PROPHYLAXIS OF NAUSEA AND VOMITING
     Dosage: 8MG AS REQUIRED
     Route: 064
     Dates: start: 201004, end: 201012
  2. NO CONCURRENT MEDICATION [Concomitant]

REACTIONS (10)
  - Enterocolitis [Not Recovered/Not Resolved]
  - Gastric ulcer [Unknown]
  - Haematochezia [Unknown]
  - Shock [Unknown]
  - Gastrooesophageal reflux disease [Unknown]
  - Vomiting [Unknown]
  - Faeces soft [Unknown]
  - Mucous stools [Unknown]
  - Abnormal faeces [Unknown]
  - Foetal exposure during pregnancy [Unknown]
